FAERS Safety Report 9708371 (Version 1)
Quarter: 2013Q4

REPORT INFORMATION
  Report Type: Spontaneous
  Country: JP (occurrence: JP)
  Receive Date: 20131125
  Receipt Date: 20131125
  Transmission Date: 20140711
  Serious: Yes (Death, Hospitalization, Other)
  Sender: FDA-Public Use
  Company Number: JP-ACTELION-A-CH2013-91554

PATIENT
  Age: 63 Year
  Sex: Female

DRUGS (4)
  1. TRACLEER [Suspect]
     Indication: PULMONARY ARTERIAL HYPERTENSION
     Dosage: UNK
     Route: 048
     Dates: start: 200806, end: 20130701
  2. SILDENAFIL CITRATE [Suspect]
     Dosage: UNK
     Dates: start: 200806, end: 20130705
  3. TADALAFIL [Concomitant]
  4. OXYGEN [Concomitant]

REACTIONS (14)
  - Interstitial lung disease [Fatal]
  - Pyrexia [Fatal]
  - Dyspnoea [Fatal]
  - Inflammation [Fatal]
  - Liver function test abnormal [Unknown]
  - Cell marker increased [Fatal]
  - Depressed level of consciousness [Unknown]
  - Lymphocyte stimulation test positive [Fatal]
  - Pneumothorax [Unknown]
  - Thoracostomy [Unknown]
  - Condition aggravated [Unknown]
  - Respiratory acidosis [Fatal]
  - General physical health deterioration [Unknown]
  - Respiratory arrest [Unknown]
